FAERS Safety Report 4427538-5 (Version None)
Quarter: 2004Q3

REPORT INFORMATION
  Report Type: 
  Country: None (occurrence: None)
  Receive Date: 20040817
  Receipt Date: 20020516
  Transmission Date: 20050211
  Serious: Yes (Disabling)
  Sender: FDA-Public Use
  Company Number: US-MERCK-0205USA02044

PATIENT
  Age: 39 Year
  Sex: Male
  Weight: 91 kg

DRUGS (3)
  1. VIOXX [Suspect]
     Indication: UPPER LIMB FRACTURE
     Route: 048
     Dates: end: 20010101
  2. VIOXX [Suspect]
     Indication: INFLAMMATION
     Route: 048
     Dates: end: 20010101
  3. COUMADIN [Concomitant]
     Route: 065
     Dates: start: 19910103

REACTIONS (10)
  - ANURIA [None]
  - CHEST PAIN [None]
  - DIZZINESS [None]
  - EMOTIONAL DISTRESS [None]
  - HYPERTENSION [None]
  - INJURY [None]
  - OEDEMA PERIPHERAL [None]
  - PROSTATITIS [None]
  - RHEUMATOID ARTHRITIS [None]
  - THROMBOSIS [None]
